FAERS Safety Report 8116645-1 (Version None)
Quarter: 2012Q1

REPORT INFORMATION
  Report Type: 
  Country: None (occurrence: None)
  Receive Date: 20120206
  Receipt Date: 20120126
  Transmission Date: 20120608
  Serious: Yes (Other)
  Sender: FDA-Public Use
  Company Number: PHEH2007US13316

PATIENT
  Sex: Male

DRUGS (38)
  1. PERIDEX [Concomitant]
  2. LISINOPRIL [Concomitant]
     Dosage: 20 MG 2/4
     Route: 048
     Dates: start: 20050428, end: 20051107
  3. MEGACE [Concomitant]
     Dosage: 40 MG BID 1/4
     Dates: start: 20060206, end: 20060801
  4. PERCOCET [Concomitant]
     Indication: PAIN
     Dosage: 5 / 325 QID PRN
  5. TERBINAFINE HCL [Concomitant]
  6. METOPROLOL [Concomitant]
  7. CYTOXAN [Concomitant]
  8. DURAGESIC-100 [Concomitant]
  9. DECADRON [Concomitant]
     Dosage: 40 MG, UNK
     Dates: start: 20020101, end: 20070801
  10. LUPRON [Concomitant]
  11. OXYCONTIN [Concomitant]
  12. AUGMENTIN '125' [Concomitant]
     Dosage: 875 MG, BID
  13. CASODEX [Concomitant]
     Dosage: 50 MG 3/4
     Dates: start: 20050517, end: 20050823
  14. CASODEX [Concomitant]
     Dosage: 50 MG 1/3
     Dates: start: 20050823, end: 20051014
  15. MEGACE [Concomitant]
     Dosage: 40 MG BID 4/6
     Dates: start: 20050406, end: 20051108
  16. MEGACE [Concomitant]
     Dosage: 40 MG BID 3/4
     Dates: start: 20051108, end: 20060206
  17. EFFEXOR [Concomitant]
  18. CASODEX [Concomitant]
     Dosage: 50 MG 0/3
     Dates: start: 20051014, end: 20051129
  19. ZOLADEX [Concomitant]
     Dosage: 10.8 MG, UNK
  20. METHADONE HCL [Concomitant]
  21. VINCRISTINE + ADRIAMYCIN + DEXAMETHASONE [Concomitant]
     Dates: end: 20020101
  22. FLUZONE [Concomitant]
     Dosage: 0.5 ML, UNK
  23. ORAMORPH SR [Concomitant]
  24. IBUPROFEN [Concomitant]
  25. ANTIBIOTICS [Concomitant]
  26. LISINOPRIL [Concomitant]
     Dosage: 20 MG 0/4
     Dates: start: 20051107, end: 20060228
  27. MOTRIN [Concomitant]
     Dosage: 600 MG 1 QID PRN
  28. RANITIDINE [Concomitant]
  29. ZOMETA [Suspect]
     Indication: METASTASES TO BONE
     Dates: end: 20060101
  30. REVLIMID [Concomitant]
     Dosage: 25 MG, QD
  31. FLEXERIL [Concomitant]
  32. OXYCODONE HCL AND ACETAMINOPHEN [Concomitant]
     Dosage: 5 MG-325 MG
     Route: 048
     Dates: start: 20050617, end: 20060414
  33. AREDIA [Suspect]
     Dates: start: 20020101, end: 20040501
  34. NEURONTIN [Concomitant]
  35. LORTAB [Concomitant]
  36. FENTANYL CITRATE [Concomitant]
     Dosage: 50 UG, UNK
     Dates: start: 20050617, end: 20060414
  37. HYDROCHLOROTHIAZIDE [Concomitant]
     Dosage: 25 MG 4/4
     Dates: start: 20050428, end: 20060421
  38. HYDROCHLOROTHIAZIDE [Concomitant]
     Dosage: 25 MG 3/4
     Dates: start: 20060421, end: 20070421

REACTIONS (65)
  - DIVERTICULUM [None]
  - NEUROPATHY PERIPHERAL [None]
  - EMPHYSEMA [None]
  - KYPHOSIS [None]
  - SYNCOPE [None]
  - CHRONIC SINUSITIS [None]
  - LEFT VENTRICULAR HYPERTROPHY [None]
  - NEPHROLITHIASIS [None]
  - CELLULITIS [None]
  - PAIN IN JAW [None]
  - INFECTION [None]
  - ANAEMIA [None]
  - HYPERTENSION [None]
  - CYST [None]
  - GASTROOESOPHAGEAL REFLUX DISEASE [None]
  - EPISTAXIS [None]
  - HOT FLUSH [None]
  - CARDIAC FAILURE CONGESTIVE [None]
  - BONE PAIN [None]
  - SKIN SWELLING [None]
  - POLLAKIURIA [None]
  - HYPOAESTHESIA [None]
  - PARAESTHESIA [None]
  - BONE LOSS [None]
  - BACK PAIN [None]
  - CONSTIPATION [None]
  - MUSCLE SWELLING [None]
  - MUSCULOSKELETAL PAIN [None]
  - AORTIC VALVE STENOSIS [None]
  - DYSPNOEA [None]
  - COMPRESSION FRACTURE [None]
  - GASTROINTESTINAL HAEMORRHAGE [None]
  - LUNG NEOPLASM [None]
  - DIARRHOEA [None]
  - MITRAL VALVE CALCIFICATION [None]
  - VASCULAR CALCIFICATION [None]
  - TRICUSPID VALVE INCOMPETENCE [None]
  - OSTEONECROSIS OF JAW [None]
  - DEFORMITY [None]
  - INSOMNIA [None]
  - ERYTHEMA [None]
  - POOR QUALITY SLEEP [None]
  - AXILLARY PAIN [None]
  - MITRAL VALVE INCOMPETENCE [None]
  - LEFT ATRIAL DILATATION [None]
  - OSTEOARTHRITIS [None]
  - AORTIC ARTERIOSCLEROSIS [None]
  - AORTIC VALVE INCOMPETENCE [None]
  - PRIMARY SEQUESTRUM [None]
  - ERECTILE DYSFUNCTION [None]
  - TENDERNESS [None]
  - DIZZINESS [None]
  - HEADACHE [None]
  - RECTAL HAEMORRHAGE [None]
  - RENAL CYST [None]
  - DYSURIA [None]
  - ABDOMINAL WALL HAEMATOMA [None]
  - PENILE SWELLING [None]
  - ARTERIOSCLEROSIS [None]
  - ONYCHOMYCOSIS [None]
  - GINGIVAL PAIN [None]
  - BONE DISORDER [None]
  - PROSTATE CANCER METASTATIC [None]
  - HAEMATOCHEZIA [None]
  - BLADDER OUTLET OBSTRUCTION [None]
